FAERS Safety Report 16830199 (Version 1)
Quarter: 2019Q3

REPORT INFORMATION
  Report Type: Report from Study
  Country: BR (occurrence: BR)
  Receive Date: 20190919
  Receipt Date: 20190919
  Transmission Date: 20191005
  Serious: Yes (Life-Threatening, Other)
  Sender: FDA-Public Use
  Company Number: PHHY2015BR060563

PATIENT
  Age: 40 Year
  Sex: Male
  Weight: 92 kg

DRUGS (9)
  1. CARBOLITIUM [Concomitant]
     Active Substance: LITHIUM CARBONATE
     Indication: DEPRESSION
     Dosage: 3 DF, QD
     Route: 048
     Dates: start: 200806
  2. FLUOXETIN [Concomitant]
     Active Substance: FLUOXETINE HYDROCHLORIDE
     Indication: ANXIETY
     Dosage: 1 DF, QD
     Route: 048
     Dates: start: 20110910
  3. SANDOSTATIN LAR DEPOT [Suspect]
     Active Substance: OCTREOTIDE ACETATE
     Dosage: 20 MG, QMO
     Route: 030
     Dates: start: 20141215, end: 20150511
  4. SANDOSTATIN LAR DEPOT [Suspect]
     Active Substance: OCTREOTIDE ACETATE
     Dosage: UNK, EVERY 21 DAYS
     Route: 030
  5. DDAVP//DESMOPRESSIN ACETATE [Concomitant]
     Indication: URINARY TRACT DISORDER
     Dosage: 1 OT (JET, EACH NOSTRIL), QD
     Route: 045
     Dates: start: 20150420
  6. DIAZEPAM. [Concomitant]
     Active Substance: DIAZEPAM
     Indication: BIPOLAR DISORDER
     Dosage: 2 DF, QD
     Route: 048
     Dates: start: 20110325
  7. QUETIAPINE FUMARATE. [Concomitant]
     Active Substance: QUETIAPINE FUMARATE
     Indication: BIPOLAR DISORDER
     Dosage: 2 DF, QD
     Route: 048
     Dates: start: 20110325
  8. SANDOSTATIN LAR DEPOT [Suspect]
     Active Substance: OCTREOTIDE ACETATE
     Indication: ACROMEGALY
     Dosage: 30 MG, UNK
     Route: 030
     Dates: start: 20140817
  9. DEPAKENE [Concomitant]
     Active Substance: VALPROIC ACID
     Indication: BIPOLAR DISORDER
     Dosage: 3 DF, QD
     Route: 048
     Dates: start: 20110325

REACTIONS (13)
  - Coma [Recovered/Resolved]
  - Second primary malignancy [Unknown]
  - Weight decreased [Recovered/Resolved]
  - Dengue fever [Unknown]
  - Heart rate increased [Unknown]
  - Alopecia [Unknown]
  - Thyroid cancer [Unknown]
  - Thyroid mass [Not Recovered/Not Resolved]
  - Delirium [Recovered/Resolved]
  - Pruritus [Unknown]
  - Cardiomegaly [Unknown]
  - Amnesia [Recovered/Resolved]
  - Inappropriate schedule of product administration [Unknown]

NARRATIVE: CASE EVENT DATE: 20150105
